FAERS Safety Report 4598482-8 (Version None)
Quarter: 2005Q1

REPORT INFORMATION
  Report Type: 
  Country: None (occurrence: None)
  Receive Date: 20050204
  Receipt Date: 20040106
  Transmission Date: 20050727
  Serious: Yes (Death)
  Sender: FDA-Public Use
  Company Number: PHEH2004US00444

PATIENT
  Age: 87 Year
  Sex: Female

DRUGS (8)
  1. CLOZARIL [Suspect]
     Indication: PSYCHOTIC DISORDER
     Dosage: 12.5MG PM + 18.75MG HS, ORAL
     Route: 048
     Dates: start: 20031126, end: 20031202
  2. KLONOPIN [Concomitant]
  3. RITALIN [Concomitant]
  4. ALDACTONE [Concomitant]
  5. POTASSIUM CHLORIDE [Concomitant]
  6. PROTONIX [Concomitant]
  7. ACETYLSALICYLIC ACID SRT [Concomitant]
  8. LEXAPRO [Concomitant]

REACTIONS (1)
  - DEATH [None]
